FAERS Safety Report 10069912 (Version 2)
Quarter: 2014Q2

REPORT INFORMATION
  Report Type: Spontaneous
  Country: US (occurrence: US)
  Receive Date: 20140410
  Receipt Date: 20140414
  Transmission Date: 20141212
  Serious: Yes (Death)
  Sender: FDA-Public Use
  Company Number: US-ROCHE-1379499

PATIENT
  Age: 60 Year
  Sex: Male

DRUGS (6)
  1. RITUXAN [Suspect]
     Indication: RHEUMATOID ARTHRITIS
     Route: 042
     Dates: start: 20140226
  2. OXYGEN [Concomitant]
  3. DEXAMETHASONE [Concomitant]
     Indication: LUNG DISORDER
  4. ARAVA [Concomitant]
     Indication: RHEUMATOID ARTHRITIS
  5. ROXICODONE [Concomitant]
     Indication: SPINAL COLUMN STENOSIS
  6. BACLOFEN [Concomitant]
     Indication: BACK PAIN

REACTIONS (3)
  - Death [Fatal]
  - Malaise [Unknown]
  - Chronic obstructive pulmonary disease [Unknown]
